FAERS Safety Report 8120607-8 (Version None)
Quarter: 2012Q1

REPORT INFORMATION
  Report Type: 
  Country: None (occurrence: None)
  Receive Date: 20120207
  Receipt Date: 20120130
  Transmission Date: 20120608
  Serious: Yes (Hospitalization)
  Sender: FDA-Public Use
  Company Number: FR-PFIZER INC-K201000313

PATIENT
  Age: 61 Year
  Sex: Male

DRUGS (10)
  1. CRESTOR [Concomitant]
     Dosage: 10 MG, UNK
  2. AMLODIPINE BESYLATE [Suspect]
     Dosage: 10 MG, 1X/DAY
  3. ESIDRIX [Suspect]
     Dosage: 25 MG, 1X/DAY
  4. TEGRETOL [Concomitant]
     Dosage: 200 MG, UNK
  5. ASPIRIN [Concomitant]
     Dosage: 75 MG, UNK
  6. GLUCOPHAGE [Concomitant]
     Dosage: 500 MG, UNK
  7. NEXIUM [Concomitant]
     Dosage: 20 MG, UNK
  8. RAMIPRIL [Suspect]
     Dosage: 10 MG, 1X/DAY
     Route: 048
  9. PRAZOSIN HCL [Suspect]
     Dosage: UNK
     Dates: end: 20091218
  10. NEBIVOLOL [Suspect]
     Dosage: 5 MG, 1X/DAY

REACTIONS (4)
  - MALAISE [None]
  - LOSS OF CONSCIOUSNESS [None]
  - DRUG INTERACTION [None]
  - ORTHOSTATIC HYPOTENSION [None]
